FAERS Safety Report 4828792-8 (Version None)
Quarter: 2005Q4

REPORT INFORMATION
  Report Type: 
  Country: None (occurrence: None)
  Receive Date: 20051014
  Receipt Date: 20050708
  Transmission Date: 20060501
  Serious: Yes (Hospitalization)
  Sender: FDA-Public Use
  Company Number: 2005SP000329

PATIENT
  Sex: Female

DRUGS (2)
  1. LUNESTA [Suspect]
     Indication: INSOMNIA
     Dosage: 2 MG; HS; ORAL
     Route: 048
     Dates: start: 20050415, end: 20050428
  2. LEXAPRO [Suspect]
     Indication: DEPRESSION
     Dosage: 10 MG; QD; ORAL
     Route: 048
     Dates: start: 20050412, end: 20050419

REACTIONS (2)
  - CELLULITIS [None]
  - ERYTHEMA MULTIFORME [None]
